FAERS Safety Report 12395508 (Version 1)
Quarter: 2016Q2

REPORT INFORMATION
  Report Type: Spontaneous
  Country: US (occurrence: US)
  Receive Date: 20160523
  Receipt Date: 20160523
  Transmission Date: 20160815
  Serious: No
  Sender: FDA-Public Use
  Company Number: US-ENDO PHARMACEUTICALS INC.-2015-003219

PATIENT
  Age: 10 Year
  Sex: Female

DRUGS (1)
  1. SUPPRELIN LA [Suspect]
     Active Substance: HISTRELIN ACETATE
     Indication: CYTOGENETIC ABNORMALITY
     Route: 058
     Dates: start: 2015

REACTIONS (1)
  - Implant site rash [Recovered/Resolved]

NARRATIVE: CASE EVENT DATE: 2015
